FAERS Safety Report 6250517-2 (Version None)
Quarter: 2009Q2

REPORT INFORMATION
  Report Type: 
  Country: None (occurrence: None)
  Receive Date: 20090630
  Receipt Date: 20090624
  Transmission Date: 20091009
  Serious: Yes (Hospitalization)
  Sender: FDA-Public Use
  Company Number: BR-ROCHE-640216

PATIENT
  Sex: Male
  Weight: 66 kg

DRUGS (1)
  1. CLONAZEPAM [Suspect]
     Route: 048
     Dates: start: 20090501, end: 20090621

REACTIONS (1)
  - SYNCOPE [None]
